FAERS Safety Report 6676537-1 (Version None)
Quarter: 2010Q2

REPORT INFORMATION
  Report Type: 
  Country: None (occurrence: None)
  Receive Date: 20100412
  Receipt Date: 20100406
  Transmission Date: 20101027
  Serious: Yes (Disabling)
  Sender: FDA-Public Use
  Company Number: CA-GENZYME-FABR-1001305

PATIENT

DRUGS (8)
  1. FABRAZYME [Suspect]
     Indication: FABRY'S DISEASE
     Dosage: 1.0 MG/KG, Q2W
     Route: 042
     Dates: start: 20010315
  2. FABRAZYME [Suspect]
     Dosage: 65 MG, UNK
  3. WARFARIN SODIUM [Concomitant]
     Indication: DRUG USE FOR UNKNOWN INDICATION
     Dosage: UNK
  4. LASIX [Concomitant]
     Indication: DRUG USE FOR UNKNOWN INDICATION
     Dosage: 40 MG, QD
  5. ATENOLOL [Concomitant]
     Indication: DRUG USE FOR UNKNOWN INDICATION
     Dosage: 50 MG, QD
  6. ATACAND [Concomitant]
     Indication: DRUG USE FOR UNKNOWN INDICATION
     Dosage: 16 MG, QD
  7. SIMVASTATIN [Concomitant]
     Indication: DRUG USE FOR UNKNOWN INDICATION
     Dosage: 40 MG, QD
  8. SYNTHROID [Concomitant]
     Indication: DRUG USE FOR UNKNOWN INDICATION
     Dosage: 75 MG, QD

REACTIONS (2)
  - BRAIN STEM INFARCTION [None]
  - TRANSIENT ISCHAEMIC ATTACK [None]
